FAERS Safety Report 13575883 (Version 2)
Quarter: 2017Q2

REPORT INFORMATION
  Report Type: Spontaneous
  Country: JP (occurrence: JP)
  Receive Date: 20170524
  Receipt Date: 20170530
  Transmission Date: 20170830
  Serious: Yes (Hospitalization, Other)
  Sender: FDA-Public Use
  Company Number: JP-009507513-1705JPN001735J

PATIENT
  Age: 44 Year
  Sex: Male
  Weight: 72 kg

DRUGS (4)
  1. FUROSEMIDE. [Concomitant]
     Active Substance: FUROSEMIDE
     Indication: LUNG ADENOCARCINOMA
     Dosage: 40 MG, QD
     Route: 048
  2. LOXOPROFEN SODIUM [Concomitant]
     Active Substance: LOXOPROFEN SODIUM
     Indication: LUNG ADENOCARCINOMA
     Dosage: 60 MG, TID
     Route: 048
  3. KEYTRUDA [Suspect]
     Active Substance: PEMBROLIZUMAB
     Indication: LUNG ADENOCARCINOMA
     Dosage: 200 MG, Q3W
     Route: 041
     Dates: start: 20170404, end: 20170518
  4. NEXIUM [Concomitant]
     Active Substance: ESOMEPRAZOLE MAGNESIUM
     Indication: PROPHYLAXIS
     Dosage: 20 MG, QD
     Route: 048

REACTIONS (1)
  - Pericarditis malignant [Not Recovered/Not Resolved]

NARRATIVE: CASE EVENT DATE: 201705
